FAERS Safety Report 19882998 (Version 1)
Quarter: 2021Q3

REPORT INFORMATION
  Report Type: Report from Study
  Country: CA (occurrence: CA)
  Receive Date: 20210926
  Receipt Date: 20210926
  Transmission Date: 20211014
  Serious: Yes (Hospitalization)
  Sender: FDA-Public Use
  Company Number: CA-SA-2021SA300992

PATIENT
  Age: 40 Year
  Sex: Female

DRUGS (5)
  1. VITAMIN D NOS [Concomitant]
     Active Substance: VITAMIN D NOS
  2. TERIFLUNOMIDE. [Suspect]
     Active Substance: TERIFLUNOMIDE
     Indication: RELAPSING-REMITTING MULTIPLE SCLEROSIS
     Dosage: 14 MG, QD
     Route: 048
     Dates: start: 20200830
  3. VITAMIN B COMPLEX [Concomitant]
     Active Substance: CYANOCOBALAMIN\DEXPANTHENOL\NIACINAMIDE\PYRIDOXINE HYDROCHLORIDE\RIBOFLAVIN 5^-PHOSPHATE SODIUM\THIAMINE HYDROCHLORIDE\VITAMIN B COMPLEX
  4. MAGNESIUM [Concomitant]
     Active Substance: MAGNESIUM
  5. ASHWAGANDHA [WITHANIA SOMNIFERA] [Concomitant]
     Active Substance: HERBALS
     Dosage: UNK

REACTIONS (3)
  - Dizziness [Unknown]
  - Palpitations [Unknown]
  - Nausea [Unknown]

NARRATIVE: CASE EVENT DATE: 20210830
